FAERS Safety Report 19277799 (Version 1)
Quarter: 2021Q2

REPORT INFORMATION
  Report Type: Spontaneous
  Country: JP (occurrence: JP)
  Receive Date: 20210520
  Receipt Date: 20210520
  Transmission Date: 20210717
  Serious: Yes (Life-Threatening, Hospitalization)
  Sender: FDA-Public Use
  Company Number: JP-TEVA-2021-JP-1914730

PATIENT
  Age: 31 Year
  Sex: Female

DRUGS (3)
  1. ADENOSINE TRIPHOSPHATE [Suspect]
     Active Substance: ADENOSINE TRIPHOSPHATE
     Indication: ATRIAL TACHYCARDIA
     Route: 042
  2. VERAPAMIL [Suspect]
     Active Substance: VERAPAMIL HYDROCHLORIDE
     Indication: ATRIAL TACHYCARDIA
     Route: 042
  3. LANDIOLOL [Suspect]
     Active Substance: LANDIOLOL
     Indication: ATRIAL TACHYCARDIA
     Route: 042

REACTIONS (1)
  - Drug ineffective [Unknown]
